FAERS Safety Report 7829748-3 (Version None)
Quarter: 2011Q4

REPORT INFORMATION
  Report Type: 
  Country: None (occurrence: None)
  Receive Date: 20111021
  Receipt Date: 20111013
  Transmission Date: 20120403
  Serious: Yes (Hospitalization)
  Sender: FDA-Public Use
  Company Number: JP-JNJFOC-20111006873

PATIENT
  Sex: Female
  Weight: 69 kg

DRUGS (3)
  1. PALIPERIDONE [Suspect]
     Route: 030
     Dates: start: 20110301, end: 20110301
  2. PALIPERIDONE [Suspect]
     Indication: SCHIZOPHRENIA
     Route: 030
     Dates: start: 20110222, end: 20110222
  3. PALIPERIDONE [Suspect]
     Route: 030
     Dates: start: 20110329

REACTIONS (1)
  - SCHIZOPHRENIA [None]
